FAERS Safety Report 4530038-5 (Version None)
Quarter: 2004Q4

REPORT INFORMATION
  Report Type: 
  Country: None (occurrence: None)
  Receive Date: 20041217
  Receipt Date: 20041108
  Transmission Date: 20050328
  Serious: Yes (Death, Hospitalization)
  Sender: FDA-Public Use
  Company Number: US-BRISTOL-MYERS SQUIBB COMPANY-12758850

PATIENT
  Age: 70 Year
  Sex: Male

DRUGS (4)
  1. ERBITUX [Suspect]
     Indication: COLON CANCER
     Dosage: 1ST INFUSION 18-MAR-04 (800 MG), REC'D 38 CC/76 MG. D/C 19-MAR-04
     Route: 042
     Dates: start: 20040318, end: 20040318
  2. ZOFRAN [Concomitant]
     Indication: PREMEDICATION
     Route: 042
     Dates: start: 20040318, end: 20040318
  3. DECADRON [Concomitant]
     Indication: PREMEDICATION
     Route: 042
     Dates: start: 20040318, end: 20040318
  4. BENADRYL [Concomitant]
     Indication: PREMEDICATION
     Route: 042
     Dates: start: 20040318, end: 20040318

REACTIONS (4)
  - COLON CANCER [None]
  - DYSPNOEA [None]
  - HYPOTENSION [None]
  - LOSS OF CONSCIOUSNESS [None]
